FAERS Safety Report 7415609-0 (Version None)
Quarter: 2011Q2

REPORT INFORMATION
  Report Type: 
  Country: None (occurrence: None)
  Receive Date: 20110414
  Receipt Date: 20110405
  Transmission Date: 20111010
  Serious: Yes (Hospitalization, Other)
  Sender: FDA-Public Use
  Company Number: US-ASTRAZENECA-2011SE03111

PATIENT
  Age: 55 Year
  Sex: Female

DRUGS (14)
  1. RIBOFLAVIN TAB [Concomitant]
  2. SEROQUEL [Suspect]
     Route: 048
  3. FAMOTIDINE [Concomitant]
  4. SEROQUEL [Suspect]
     Route: 048
  5. FLOVENT [Concomitant]
  6. VICODIN [Concomitant]
  7. SEROQUEL [Suspect]
     Indication: SLEEP DISORDER
     Route: 048
  8. CLONAZEPAM [Concomitant]
  9. SEROQUEL [Suspect]
     Route: 048
  10. COMBIVENT [Concomitant]
  11. 2 FLUID PILLS [Concomitant]
  12. SEROQUEL [Suspect]
     Indication: BIPOLAR DISORDER
     Route: 048
  13. SEROQUEL [Suspect]
     Indication: HALLUCINATION, VISUAL
     Route: 048
  14. LORAZEPAM [Concomitant]

REACTIONS (7)
  - NEOPLASM MALIGNANT [None]
  - OFF LABEL USE [None]
  - HEPATIC CIRRHOSIS [None]
  - POOR QUALITY SLEEP [None]
  - HEPATITIS C [None]
  - THERAPEUTIC PRODUCT INEFFECTIVE FOR UNAPPROVED INDICATION [None]
  - PNEUMONIA [None]
